FAERS Safety Report 8850253 (Version 1)
Quarter: 2012Q4

REPORT INFORMATION
  Report Type: 
  Country: US (occurrence: US)
  Receive Date: 20121019
  Receipt Date: 20121019
  Transmission Date: 20130627
  Serious: Yes (Hospitalization, Other)
  Sender: FDA-Public Use
  Company Number: CHPA2012US019872

PATIENT
  Age: 80 Year
  Sex: Female

DRUGS (5)
  1. EX-LAX REG STR CHOCOLATED LAX PCS SEN [Suspect]
     Indication: PROPHYLAXIS
     Dosage: 2 DF, BEFORE BED WEEKLY
     Route: 048
  2. EX-LAX REG STR CHOCOLATED LAX PCS SEN [Suspect]
     Dosage: Unk, ONCE/SINGLE
     Route: 048
     Dates: start: 20120911, end: 20120911
  3. EX-LAX REG STR CHOCOLATED LAX PCS SEN [Suspect]
     Dosage: 2 DF, BEFORE BED WEEKLY
     Route: 048
  4. EX-LAX REG STR CHOCOLATED LAX PCS SEN [Suspect]
     Dosage: 2 DF, ONCE A MONTH
     Route: 048
  5. HEPARIN [Suspect]
     Indication: THROMBOSIS
     Dosage: Unk, Unk

REACTIONS (14)
  - Thrombosis [Recovered/Resolved]
  - Pain in extremity [Recovered/Resolved]
  - Back pain [Not Recovered/Not Resolved]
  - Mobility decreased [Recovered/Resolved]
  - Spinal fracture [Recovered/Resolved]
  - Fall [Recovered/Resolved]
  - Post procedural complication [Recovered/Resolved]
  - Mass [Recovered/Resolved]
  - Memory impairment [Not Recovered/Not Resolved]
  - Malaise [Recovered/Resolved]
  - Muscle spasms [Recovered/Resolved]
  - Off label use [Unknown]
  - Therapeutic response decreased [Unknown]
  - Incorrect product storage [Unknown]
